FAERS Safety Report 8080402-5 (Version None)
Quarter: 2012Q1

REPORT INFORMATION
  Report Type: 
  Country: None (occurrence: None)
  Receive Date: 20120130
  Receipt Date: 20120117
  Transmission Date: 20120608
  Serious: Yes (Death)
  Sender: FDA-Public Use
  Company Number: GR-ASTELLAS-2012US000706

PATIENT
  Age: 74 Year
  Sex: Male

DRUGS (2)
  1. AMBISOME [Suspect]
     Indication: ZYGOMYCOSIS
     Dosage: 300 MG, UID/QD
     Route: 065
  2. AMBISOME [Suspect]
     Dosage: 450 MG, UID/QD
     Route: 065

REACTIONS (1)
  - DRUG INEFFECTIVE FOR UNAPPROVED INDICATION [None]
